FAERS Safety Report 9328045 (Version 1)
Quarter: 2013Q2

REPORT INFORMATION
  Report Type: Spontaneous
  Country: US (occurrence: US)
  Receive Date: 20130604
  Receipt Date: 20130604
  Transmission Date: 20140414
  Serious: No
  Sender: FDA-Public Use
  Company Number: US-SANOFI-AVENTIS-2012SA030990

PATIENT
  Sex: Male

DRUGS (1)
  1. LANTUS [Suspect]
     Dosage: DOSE:10 UNIT(S)
     Route: 058

REACTIONS (4)
  - Anxiety disorder [Unknown]
  - Tremor [Unknown]
  - Asthenia [Unknown]
  - Blood glucose decreased [Unknown]
